FAERS Safety Report 6568765-0 (Version None)
Quarter: 2010Q1

REPORT INFORMATION
  Report Type: 
  Country: None (occurrence: None)
  Receive Date: 20100203
  Receipt Date: 20100125
  Transmission Date: 20100710
  Serious: Yes (Hospitalization)
  Sender: FDA-Public Use
  Company Number: US-AMGEN-QUU388344

PATIENT
  Sex: Female

DRUGS (3)
  1. ENBREL [Suspect]
     Indication: RHEUMATOID ARTHRITIS
     Route: 058
  2. SULFASALAZINE [Concomitant]
     Route: 048
  3. METHOTREXATE [Concomitant]
     Route: 048

REACTIONS (7)
  - ARTHRITIS [None]
  - INFECTION SUSCEPTIBILITY INCREASED [None]
  - INJECTION SITE INDURATION [None]
  - INJECTION SITE URTICARIA [None]
  - MUSCULAR WEAKNESS [None]
  - OXYGEN SATURATION DECREASED [None]
  - RHEUMATOID ARTHRITIS [None]
